FAERS Safety Report 25212273 (Version 2)
Quarter: 2025Q3

REPORT INFORMATION
  Report Type: Spontaneous
  Country: US (occurrence: US)
  Receive Date: 20250418
  Receipt Date: 20250816
  Transmission Date: 20251021
  Serious: No
  Sender: ALEXION PHARMACEUTICALS
  Company Number: US-AstraZeneca-CH-00845005A

PATIENT
  Age: 62 Year
  Sex: Female

DRUGS (1)
  1. CRESTOR [Suspect]
     Active Substance: ROSUVASTATIN CALCIUM
     Route: 065
     Dates: start: 202412, end: 20250407

REACTIONS (3)
  - Epistaxis [Not Recovered/Not Resolved]
  - Burnout syndrome [Unknown]
  - Epistaxis [Unknown]

NARRATIVE: CASE EVENT DATE: 20250404
